FAERS Safety Report 7396700-4 (Version None)
Quarter: 2011Q2

REPORT INFORMATION
  Report Type: 
  Country: None (occurrence: None)
  Receive Date: 20110406
  Receipt Date: 20110328
  Transmission Date: 20111010
  Serious: Yes (Hospitalization)
  Sender: FDA-Public Use
  Company Number: IT-ROCHE-766576

PATIENT
  Sex: Female

DRUGS (5)
  1. MUSCORIL [Concomitant]
     Dosage: 4MG/2ML SOLUTION FOR INJECTION
     Route: 030
     Dates: start: 20110129, end: 20110212
  2. TORADOL [Suspect]
     Route: 048
     Dates: start: 20110129, end: 20110212
  3. CARVIPRESS [Concomitant]
  4. HYZAAR [Concomitant]
  5. VOLTAREN [Suspect]
     Route: 030
     Dates: start: 20110129, end: 20110212

REACTIONS (3)
  - DUODENAL ULCER HAEMORRHAGE [None]
  - GASTROINTESTINAL ULCER HAEMORRHAGE [None]
  - ANAEMIA [None]
